FAERS Safety Report 6545397-1 (Version None)
Quarter: 2010Q1

REPORT INFORMATION
  Report Type: 
  Country: None (occurrence: None)
  Receive Date: 20100121
  Receipt Date: 20100115
  Transmission Date: 20100710
  Serious: Yes (Death, Other)
  Sender: FDA-Public Use
  Company Number: US-JNJFOC-20100106556

PATIENT
  Age: 60 Year
  Sex: Female

DRUGS (5)
  1. ACETAMINOPHEN AND CODEINE PHOSPHATE [Suspect]
     Route: 048
  2. ACETAMINOPHEN AND CODEINE PHOSPHATE [Suspect]
     Indication: SUICIDE ATTEMPT
     Route: 048
  3. DULOXETINE [Suspect]
     Indication: SUICIDE ATTEMPT
     Route: 048
  4. ZOLPIDEM [Suspect]
     Indication: SUICIDE ATTEMPT
     Route: 048
  5. OLANZAPINE [Suspect]
     Indication: SUICIDE ATTEMPT
     Route: 048

REACTIONS (2)
  - COMPLETED SUICIDE [None]
  - DRUG TOXICITY [None]
